FAERS Safety Report 18529253 (Version 4)
Quarter: 2021Q2

REPORT INFORMATION
  Report Type: Spontaneous
  Country: US (occurrence: US)
  Receive Date: 20201120
  Receipt Date: 20210518
  Transmission Date: 20210717
  Serious: No
  Sender: FDA-Public Use
  Company Number: US-PFIZER INC-2020457679

PATIENT
  Age: 47 Year
  Sex: Female
  Weight: 113.37 kg

DRUGS (19)
  1. CLONAZEPAM. [Concomitant]
     Active Substance: CLONAZEPAM
     Dosage: UNK
  2. METFORMIN [Concomitant]
     Active Substance: METFORMIN HYDROCHLORIDE
     Dosage: 850 MG
  3. TRIAMCINOLONE ACETONIDE. [Concomitant]
     Active Substance: TRIAMCINOLONE ACETONIDE
     Dosage: UNK
  4. CLARITINE [Concomitant]
     Active Substance: LORATADINE
     Dosage: 10 MG
  5. DIPHENHYDRAMINE HCL [Concomitant]
     Active Substance: DIPHENHYDRAMINE HYDROCHLORIDE
     Dosage: 25 MG
  6. TAMOXIFEN [Concomitant]
     Active Substance: TAMOXIFEN
     Dosage: UNK
  7. ATORVASTATIN [Concomitant]
     Active Substance: ATORVASTATIN
     Dosage: UNK
  8. CITALOPRAM [Concomitant]
     Active Substance: CITALOPRAM HYDROBROMIDE
     Dosage: UNK
  9. CITALOPRAM [Concomitant]
     Active Substance: CITALOPRAM HYDROBROMIDE
     Dosage: 20 MG
  10. IBRANCE [Suspect]
     Active Substance: PALBOCICLIB
     Indication: BREAST CANCER FEMALE
     Dosage: 125 MG, CYCLIC (125 MG, 1 DAILY FOR 21 DAYS)(DAILY FOR 21DAYS, THEN 7 DAYS OFF)
     Route: 048
     Dates: start: 20201018
  11. LETROZOLE. [Concomitant]
     Active Substance: LETROZOLE
     Dosage: UNK
  12. LEVOTHYROXINE. [Concomitant]
     Active Substance: LEVOTHYROXINE
     Dosage: UNK
  13. LORAZEPAM. [Concomitant]
     Active Substance: LORAZEPAM
     Dosage: UNK
  14. MAGNESIUM SULFATE. [Concomitant]
     Active Substance: MAGNESIUM SULFATE
     Dosage: 300 MG
  15. IBRANCE [Suspect]
     Active Substance: PALBOCICLIB
     Dosage: 125 MG, 1X/DAY (FOR 21 DAYS)
     Route: 048
     Dates: start: 20201018
  16. ONDANSETRON HCL [Concomitant]
     Active Substance: ONDANSETRON HYDROCHLORIDE
     Dosage: 4 MG
  17. ESOMEPRAZOLE. [Concomitant]
     Active Substance: ESOMEPRAZOLE MAGNESIUM
     Dosage: UNK
  18. LORAZEPAM. [Concomitant]
     Active Substance: LORAZEPAM
     Dosage: 1 MG
  19. VITAMIN D3 [Concomitant]
     Active Substance: CHOLECALCIFEROL
     Dosage: 25 MCG

REACTIONS (20)
  - Thirst [Not Recovered/Not Resolved]
  - Seasonal allergy [Not Recovered/Not Resolved]
  - Restless legs syndrome [Unknown]
  - Oropharyngeal pain [Recovering/Resolving]
  - COVID-19 [Recovering/Resolving]
  - Dyspnoea [Recovering/Resolving]
  - Headache [Recovering/Resolving]
  - Hot flush [Unknown]
  - Dry mouth [Not Recovered/Not Resolved]
  - Lymphoedema [Unknown]
  - Nausea [Recovering/Resolving]
  - Respiratory tract congestion [Recovering/Resolving]
  - Fatigue [Unknown]
  - Constipation [Unknown]
  - Oral disorder [Recovering/Resolving]
  - Nasal congestion [Recovering/Resolving]
  - Pain [Recovering/Resolving]
  - Pruritus [Not Recovered/Not Resolved]
  - Mite allergy [Not Recovered/Not Resolved]
  - Chills [Recovering/Resolving]

NARRATIVE: CASE EVENT DATE: 2020
